FAERS Safety Report 6207093-X (Version None)
Quarter: 2009Q2

REPORT INFORMATION
  Report Type: 
  Country: None (occurrence: None)
  Receive Date: 20090528
  Receipt Date: 20090526
  Transmission Date: 20091009
  Serious: Yes (Hospitalization)
  Sender: FDA-Public Use
  Company Number: JP-BAYER-200911722BYL

PATIENT
  Age: 62 Year
  Sex: Male
  Weight: 66 kg

DRUGS (18)
  1. NEXAVAR [Suspect]
     Indication: RENAL CELL CARCINOMA STAGE IV
     Dosage: TOTAL DAILY DOSE: 800 MG  UNIT DOSE: 200 MG
     Route: 048
     Dates: start: 20080821
  2. NEXAVAR [Suspect]
     Dosage: UNIT DOSE: 200 MG
     Route: 048
     Dates: start: 20081016, end: 20090506
  3. MAGNESIUM OXIDE [Concomitant]
     Route: 048
     Dates: start: 20080823, end: 20090225
  4. LAC-B [Concomitant]
     Route: 048
     Dates: start: 20090206, end: 20090506
  5. LAC-B [Concomitant]
     Route: 048
     Dates: start: 20080829, end: 20080909
  6. FERROMIA [Concomitant]
     Route: 048
     Dates: start: 20080902, end: 20081022
  7. HARNAL [Concomitant]
     Route: 048
     Dates: start: 20090114, end: 20090225
  8. UBRETID [Concomitant]
     Route: 048
     Dates: start: 20090114, end: 20090128
  9. LOXONIN [Concomitant]
     Route: 048
     Dates: start: 20090210, end: 20090506
  10. SELBEX [Concomitant]
     Dosage: TOTAL DAILY DOSE: 150 MG  UNIT DOSE: 50 MG
     Route: 048
     Dates: start: 20090210, end: 20090325
  11. TAGAMET [Concomitant]
     Route: 048
     Dates: start: 20090325, end: 20090506
  12. MOBIC [Concomitant]
     Route: 048
     Dates: start: 20090325, end: 20090506
  13. BLOPRESS [Concomitant]
     Route: 048
     Dates: start: 20090325, end: 20090506
  14. CRAVIT [Concomitant]
     Route: 048
     Dates: start: 20090408, end: 20090415
  15. VOLTAREN [Concomitant]
     Route: 054
     Dates: start: 20090408, end: 20090415
  16. PENTCILLIN [Concomitant]
     Route: 042
     Dates: start: 20090422, end: 20090501
  17. RHYTHMY [Concomitant]
     Route: 048
     Dates: start: 20090424, end: 20090515
  18. ALPRAZOLAM [Concomitant]
     Route: 048
     Dates: start: 20090425, end: 20090515

REACTIONS (3)
  - DECUBITUS ULCER [None]
  - DIARRHOEA [None]
  - PALMAR-PLANTAR ERYTHRODYSAESTHESIA SYNDROME [None]
